FAERS Safety Report 8392132-0 (Version None)
Quarter: 2012Q2

REPORT INFORMATION
  Report Type: 
  Country: None (occurrence: None)
  Receive Date: 20120529
  Receipt Date: 20120518
  Transmission Date: 20120825
  Serious: Yes (Other)
  Sender: FDA-Public Use
  Company Number: US-ROCHE-1070295

PATIENT

DRUGS (2)
  1. ACTONEL [Suspect]
     Indication: OSTEOPOROSIS
  2. IBANDRONATE SODIUM [Suspect]
     Indication: OSTEOPOROSIS

REACTIONS (4)
  - FEMUR FRACTURE [None]
  - ANXIETY [None]
  - LOW TURNOVER OSTEOPATHY [None]
  - BONE DISORDER [None]
